FAERS Safety Report 5108272-5 (Version None)
Quarter: 2006Q3

REPORT INFORMATION
  Report Type: 
  Country: None (occurrence: None)
  Receive Date: 20060919
  Receipt Date: 20051007
  Transmission Date: 20061208
  Serious: Yes (Other)
  Sender: FDA-Public Use
  Company Number: US-BRISTOL-MYERS SQUIBB COMPANY-13137757

PATIENT
  Sex: Female

DRUGS (1)
  1. MEGACE [Suspect]
     Indication: ORAL INTAKE REDUCED
     Route: 048
     Dates: start: 20051003

REACTIONS (1)
  - BLOOD GLUCOSE INCREASED [None]
